FAERS Safety Report 6977333-8 (Version None)
Quarter: 2010Q3

REPORT INFORMATION
  Report Type: 
  Country: None (occurrence: None)
  Receive Date: 20100910
  Receipt Date: 20100830
  Transmission Date: 20110219
  Serious: Yes (Other)
  Sender: FDA-Public Use
  Company Number: PHHY2010US58054

PATIENT
  Sex: Female

DRUGS (3)
  1. DIOVAN [Suspect]
     Dosage: UNK
  2. TOPRAL [Concomitant]
  3. CRESTOR [Concomitant]

REACTIONS (4)
  - DIZZINESS [None]
  - DRUG DOSE OMISSION [None]
  - HYPOTENSION [None]
  - NEPHROLITHIASIS [None]
